FAERS Safety Report 8241577-8 (Version None)
Quarter: 2012Q1

REPORT INFORMATION
  Report Type: 
  Country: None (occurrence: None)
  Receive Date: 20120328
  Receipt Date: 20120320
  Transmission Date: 20120608
  Serious: Yes (Other)
  Sender: FDA-Public Use
  Company Number: IT-PFIZER INC-2012069121

PATIENT
  Age: 11 Year
  Sex: Male

DRUGS (4)
  1. ZITHROMAX [Suspect]
     Indication: OROPHARYNGEAL PAIN
  2. ALBUTEROL SULFATE [Concomitant]
  3. CETIRIZINE HCL [Concomitant]
  4. ZITHROMAX [Suspect]
     Indication: PYREXIA

REACTIONS (3)
  - URTICARIA [None]
  - BRONCHOSPASM [None]
  - HYPERSENSITIVITY [None]
